FAERS Safety Report 21278463 (Version 1)
Quarter: 2022Q3

REPORT INFORMATION
  Report Type: Spontaneous
  Country: US (occurrence: None)
  Receive Date: 20220831
  Receipt Date: 20220831
  Transmission Date: 20221027
  Serious: Yes (Other)
  Sender: FDA-Public Use
  Company Number: 2022A298613

PATIENT
  Sex: Female
  Weight: 73.9 kg

DRUGS (1)
  1. SYMBICORT [Suspect]
     Active Substance: BUDESONIDE\FORMOTEROL FUMARATE DIHYDRATE
     Indication: Asthma
     Dosage: 160/ 4.5 MCG 2 PUFFS BID
     Route: 055

REACTIONS (2)
  - Chronic kidney disease [Unknown]
  - Gastrooesophageal reflux disease [Unknown]
